FAERS Safety Report 24888584 (Version 5)
Quarter: 2025Q1

REPORT INFORMATION
  Report Type: Spontaneous
  Country: US (occurrence: US)
  Receive Date: 20250127
  Receipt Date: 20250219
  Transmission Date: 20250409
  Serious: No
  Sender: AMGEN
  Company Number: US-AMGEN-USASP2025012172

PATIENT
  Sex: Female

DRUGS (3)
  1. NEULASTA [Suspect]
     Active Substance: PEGFILGRASTIM
     Indication: Haematemesis
     Dosage: 6 MILLIGRAM, Q2WK (0.6 ML ON DAY 3 OF EACH CYCLE EVERY 14 DAYS)( 6MG/0.6ML)
     Route: 058
  2. NEULASTA [Suspect]
     Active Substance: PEGFILGRASTIM
     Indication: Anaemia
     Dosage: 6 MILLIGRAM, Q2WK (0.6 ML ON DAY 3 OF EACH CYCLE EVERY 14 DAYS)( 6MG/0.6ML)
     Route: 058
  3. NEULASTA [Suspect]
     Active Substance: PEGFILGRASTIM
     Indication: Off label use

REACTIONS (2)
  - Device failure [Unknown]
  - Off label use [Unknown]

NARRATIVE: CASE EVENT DATE: 20241211
